FAERS Safety Report 10437349 (Version 2)
Quarter: 2014Q3

REPORT INFORMATION
  Report Type: Spontaneous
  Country: US (occurrence: US)
  Receive Date: 20140908
  Receipt Date: 20140908
  Transmission Date: 20150326
  Serious: No
  Sender: FDA-Public Use
  Company Number: US-BRISTOL-MYERS SQUIBB COMPANY-20355715

PATIENT
  Sex: Male

DRUGS (1)
  1. ABILIFY [Suspect]
     Active Substance: ARIPIPRAZOLE
     Dosage: DOSE INCREASED TO 4 MG AND 5 MG

REACTIONS (1)
  - Adverse event [Unknown]
